FAERS Safety Report 13905208 (Version 1)
Quarter: 2017Q3

REPORT INFORMATION
  Report Type: Spontaneous
  Country: US (occurrence: None)
  Receive Date: 20170824
  Receipt Date: 20170824
  Transmission Date: 20171127
  Serious: Yes (Hospitalization)
  Sender: FDA-Public Use
  Company Number: None

PATIENT
  Age: 74 Year
  Sex: Female

DRUGS (14)
  1. DIGOXIN. [Concomitant]
     Active Substance: DIGOXIN
  2. DILTIAZEM. [Concomitant]
     Active Substance: DILTIAZEM
  3. ALECENSA [Suspect]
     Active Substance: ALECTINIB HYDROCHLORIDE
     Indication: NEOPLASM MALIGNANT
     Route: 048
     Dates: start: 20170601
  4. METOPROLOL. [Concomitant]
     Active Substance: METOPROLOL
  5. SIMVASTATIN. [Concomitant]
     Active Substance: SIMVASTATIN
  6. WARFARIN [Concomitant]
     Active Substance: WARFARIN
  7. FOLIC ACID. [Concomitant]
     Active Substance: FOLIC ACID
  8. RANITIDINE. [Concomitant]
     Active Substance: RANITIDINE
  9. SPIRIVA [Concomitant]
     Active Substance: TIOTROPIUM BROMIDE MONOHYDRATE
  10. VITAMIN D3 [Concomitant]
     Active Substance: CHOLECALCIFEROL
  11. LAMOTRIGINE. [Concomitant]
     Active Substance: LAMOTRIGINE
  12. FUROSEMIDE. [Concomitant]
     Active Substance: FUROSEMIDE
  13. BREO ELLIPTA [Concomitant]
     Active Substance: FLUTICASONE FUROATE\VILANTEROL TRIFENATATE
  14. TYLENOL [Concomitant]
     Active Substance: ACETAMINOPHEN

REACTIONS (2)
  - Lung disorder [None]
  - Fluid retention [None]

NARRATIVE: CASE EVENT DATE: 20170802
